FAERS Safety Report 5339066-3 (Version None)
Quarter: 2007Q2

REPORT INFORMATION
  Report Type: 
  Country: None (occurrence: None)
  Receive Date: 20070530
  Receipt Date: 20070521
  Transmission Date: 20071010
  Serious: Yes (Death, Other)
  Sender: FDA-Public Use
  Company Number: US-GENENTECH-241797

PATIENT
  Sex: Male
  Weight: 105.76 kg

DRUGS (11)
  1. RITUXAN [Suspect]
     Indication: DRUG USE FOR UNKNOWN INDICATION
     Dosage: UNK, UNK
  2. TOSITUMOMAB [Suspect]
     Indication: NON-HODGKIN'S LYMPHOMA
     Dosage: 450 MG, SINGLE
     Route: 042
     Dates: start: 19980819, end: 19980819
  3. TOSITUMOMAB [Suspect]
     Dosage: 450 MG, SINGLE
     Route: 042
     Dates: start: 19980827, end: 19980827
  4. IODINE I-131 TOSITUMOMAB [Suspect]
     Indication: NON-HODGKIN'S LYMPHOMA
     Dosage: 5 MCI, SINGLE
     Route: 042
     Dates: start: 19980819, end: 19980819
  5. IODINE I-131 TOSITUMOMAB [Suspect]
     Dosage: 108.74 MCI, SINGLE
     Route: 042
     Dates: start: 19980827, end: 19980827
  6. DIGOXIN [Concomitant]
     Indication: DRUG USE FOR UNKNOWN INDICATION
  7. SOTALOL HYDROCHLORIDE [Concomitant]
     Indication: DRUG USE FOR UNKNOWN INDICATION
  8. ACYCLOVIR [Concomitant]
     Indication: DRUG USE FOR UNKNOWN INDICATION
  9. METOPROLOL SUCCINATE [Concomitant]
     Indication: DRUG USE FOR UNKNOWN INDICATION
  10. ALLOPURINOL [Concomitant]
     Indication: DRUG USE FOR UNKNOWN INDICATION
  11. CEFEPIME [Concomitant]
     Indication: DRUG USE FOR UNKNOWN INDICATION

REACTIONS (2)
  - LYMPHOMA TRANSFORMATION [None]
  - MYELODYSPLASTIC SYNDROME [None]
